FAERS Safety Report 12867753 (Version 2)
Quarter: 2016Q4

REPORT INFORMATION
  Report Type: Spontaneous
  Country: DE (occurrence: DE)
  Receive Date: 20161020
  Receipt Date: 20161116
  Transmission Date: 20170207
  Serious: Yes (Hospitalization, Other)
  Sender: FDA-Public Use
  Company Number: DE-MALLINCKRODT-T201605146

PATIENT
  Sex: Female

DRUGS (1)
  1. EXALGO [Suspect]
     Active Substance: HYDROMORPHONE HYDROCHLORIDE
     Indication: PAIN
     Dosage: 4 MG, BID
     Route: 048

REACTIONS (5)
  - Obesity [Unknown]
  - Off label use [Not Recovered/Not Resolved]
  - Renal failure [Unknown]
  - Drug prescribing error [Not Recovered/Not Resolved]
  - Mobility decreased [Unknown]
